FAERS Safety Report 6391688-7 (Version None)
Quarter: 2009Q4

REPORT INFORMATION
  Report Type: 
  Country: None (occurrence: None)
  Receive Date: 20091005
  Receipt Date: 20090924
  Transmission Date: 20100525
  Serious: Yes (Other)
  Sender: FDA-Public Use
  Company Number: 8052582

PATIENT
  Age: 57 Year
  Sex: Male

DRUGS (3)
  1. XYZAL [Suspect]
     Indication: HYPERSENSITIVITY
     Dosage: /D PO
     Route: 048
     Dates: start: 20010101
  2. XYZAL [Suspect]
     Indication: RHINITIS
     Dosage: /D PO
     Route: 048
     Dates: start: 20010101
  3. XYZAL [Suspect]
     Indication: URTICARIA
     Dosage: /D PO
     Route: 048
     Dates: start: 20010101

REACTIONS (2)
  - MACULOPATHY [None]
  - VISION BLURRED [None]
